FAERS Safety Report 9207176 (Version 1)
Quarter: 2013Q1

REPORT INFORMATION
  Report Type: Spontaneous
  Country: US (occurrence: None)
  Receive Date: 20120731
  Receipt Date: 20120731
  Transmission Date: 20140127
  Serious: No
  Sender: FDA-Public Use
  Company Number: PHEH2012US012700

PATIENT
  Age: 63 Year
  Sex: Male
  Weight: 86.2 kg

DRUGS (1)
  1. ARCAPTA [Suspect]

REACTIONS (2)
  - Gastric disorder [None]
  - Diarrhoea [None]
